FAERS Safety Report 9345641 (Version 1)
Quarter: 2013Q2

REPORT INFORMATION
  Report Type: Report from Study
  Country: FR (occurrence: FR)
  Receive Date: 20130613
  Receipt Date: 20130613
  Transmission Date: 20140414
  Serious: Yes (Life-Threatening, Hospitalization, Other)
  Sender: FDA-Public Use
  Company Number: FR-JNJFOC-20090200777

PATIENT
  Age: 30 Year
  Sex: Female
  Weight: 80 kg

DRUGS (4)
  1. REMICADE [Suspect]
     Indication: CROHN^S DISEASE
     Route: 042
     Dates: start: 20070808
  2. BUDESONIDE [Concomitant]
     Indication: CROHN^S DISEASE
  3. PREDNISOLONE [Concomitant]
     Indication: CROHN^S DISEASE
     Dates: start: 20081008
  4. ZOLOFT [Concomitant]
     Indication: DEPRESSION

REACTIONS (3)
  - Gestational diabetes [Recovered/Resolved]
  - Postpartum haemorrhage [Recovered/Resolved]
  - Exposure during pregnancy [Recovered/Resolved]
